FAERS Safety Report 25071008 (Version 2)
Quarter: 2025Q2

REPORT INFORMATION
  Report Type: Spontaneous
  Country: US (occurrence: US)
  Receive Date: 20250312
  Receipt Date: 20250424
  Transmission Date: 20250716
  Serious: No
  Sender: DR REDDYS
  Company Number: US-DRL-USA-USA/2025/03/003499

PATIENT
  Age: 23 Year
  Weight: 113.6 kg

DRUGS (1)
  1. ZENATANE [Suspect]
     Active Substance: ISOTRETINOIN
     Indication: Acne
     Route: 065
     Dates: start: 20250124, end: 20250127

REACTIONS (2)
  - Adverse drug reaction [Recovered/Resolved]
  - Therapy interrupted [Unknown]
